FAERS Safety Report 24613078 (Version 1)
Quarter: 2024Q4

REPORT INFORMATION
  Report Type: Report from Study
  Country: CN (occurrence: CN)
  Receive Date: 20241113
  Receipt Date: 20241113
  Transmission Date: 20250115
  Serious: Yes (Hospitalization)
  Sender: JOHNSON AND JOHNSON
  Company Number: CN-JNJFOC-20241115969

PATIENT
  Age: 75 Year
  Sex: Male
  Weight: 62 kg

DRUGS (11)
  1. ZYTIGA [Suspect]
     Active Substance: ABIRATERONE ACETATE
     Indication: Prostate cancer metastatic
     Route: 048
     Dates: start: 20200929
  2. PRUXELUTAMIDE [Suspect]
     Active Substance: PRUXELUTAMIDE
     Indication: Prostate cancer metastatic
     Route: 048
     Dates: start: 20200929
  3. PREDNISONE ACETATE [Suspect]
     Active Substance: PREDNISONE ACETATE
     Indication: Autoinflammatory disease
     Route: 048
     Dates: start: 20200929
  4. PANTOPRAZOLE [Concomitant]
     Active Substance: PANTOPRAZOLE
     Indication: Chronic gastritis
     Route: 048
     Dates: start: 20210407, end: 20210421
  5. METHYLCOBALAMIN [Concomitant]
     Active Substance: METHYLCOBALAMIN
     Indication: Neuropathy peripheral
     Route: 048
     Dates: start: 20210305
  6. EPERISONE [Concomitant]
     Active Substance: EPERISONE
     Indication: Intervertebral disc protrusion
     Route: 048
     Dates: start: 20210312, end: 20210421
  7. VITAMIN C [Concomitant]
     Active Substance: ASCORBIC ACID
  8. DEXTROSE [Concomitant]
     Active Substance: DEXTROSE MONOHYDRATE
  9. VITAMIN B6 [Concomitant]
     Active Substance: PYRIDOXINE HYDROCHLORIDE
  10. GLUCOSAMINE SULFATE [Concomitant]
     Active Substance: GLUCOSAMINE SULFATE
  11. ESTAZOLAM [Concomitant]
     Active Substance: ESTAZOLAM

REACTIONS (4)
  - Asthenia [Recovered/Resolved with Sequelae]
  - Weight decreased [Not Recovered/Not Resolved]
  - Muscular weakness [Recovered/Resolved]
  - Decreased appetite [Not Recovered/Not Resolved]

NARRATIVE: CASE EVENT DATE: 20201223
